FAERS Safety Report 14080111 (Version 1)
Quarter: 2017Q4

REPORT INFORMATION
  Report Type: Spontaneous
  Country: US (occurrence: US)
  Receive Date: 20171012
  Receipt Date: 20171012
  Transmission Date: 20180321
  Serious: No
  Sender: FDA-Public Use
  Company Number: US-BAYER-2017-195021

PATIENT
  Age: 83 Year
  Sex: Male
  Weight: 87.98 kg

DRUGS (1)
  1. MIRALAX [Suspect]
     Active Substance: POLYETHYLENE GLYCOL 3350
     Indication: GASTROINTESTINAL DISORDER
     Dosage: UNK
     Route: 048
     Dates: end: 201702

REACTIONS (3)
  - Irritable bowel syndrome [Unknown]
  - Incorrect drug administration duration [Unknown]
  - Blood sodium decreased [Recovered/Resolved]
